FAERS Safety Report 9381733 (Version 4)
Quarter: 2013Q3

REPORT INFORMATION
  Report Type: Spontaneous
  Country: JP (occurrence: JP)
  Receive Date: 20130703
  Receipt Date: 20130730
  Transmission Date: 20140515
  Serious: Yes (Other)
  Sender: FDA-Public Use
  Company Number: JP-PFIZER INC-2013192135

PATIENT
  Age: 79 Year
  Sex: Male

DRUGS (1)
  1. REVATIO [Suspect]
     Indication: PULMONARY HYPERTENSION
     Dosage: 60 MG/DAY

REACTIONS (3)
  - Breast mass [Unknown]
  - Hair growth abnormal [Unknown]
  - Therapeutic response unexpected [Unknown]
